FAERS Safety Report 6677946-7 (Version None)
Quarter: 2010Q2

REPORT INFORMATION
  Report Type: 
  Country: None (occurrence: None)
  Receive Date: 20100412
  Receipt Date: 20100331
  Transmission Date: 20101027
  Serious: Yes (Hospitalization)
  Sender: FDA-Public Use
  Company Number: JP-ELI_LILLY_AND_COMPANY-JP201004002185

PATIENT
  Sex: Male
  Weight: 63.5 kg

DRUGS (26)
  1. PEMETREXED [Suspect]
     Indication: NON-SMALL CELL LUNG CANCER
     Dosage: 500 MG/M2, OTHER
     Route: 042
     Dates: start: 20100114, end: 20100210
  2. PEMETREXED [Suspect]
     Dosage: 700 MG, OTHER
     Route: 042
     Dates: start: 20100324, end: 20100324
  3. PARAPLATIN [Concomitant]
     Indication: NON-SMALL CELL LUNG CANCER
     Dosage: 550 MG, OTHER
     Route: 042
     Dates: start: 20100114, end: 20100114
  4. PARAPLATIN [Concomitant]
     Dosage: 500 MG, OTHER
     Route: 042
     Dates: start: 20100210, end: 20100210
  5. PARAPLATIN [Concomitant]
     Dosage: 380 MG, OTHER
     Route: 042
     Dates: start: 20100324, end: 20100324
  6. VITAMIN B-12 [Concomitant]
     Indication: PROPHYLAXIS
     Dosage: 1 ML, DAILY (1/D)
     Route: 030
     Dates: start: 20100106, end: 20100106
  7. VITAMIN B-12 [Concomitant]
     Dosage: 1 ML, DAILY (1/D)
     Route: 030
     Dates: start: 20100312, end: 20100312
  8. PANVITAN [Concomitant]
     Indication: PROPHYLAXIS
     Dosage: 1 G, DAILY (1/D)
     Route: 048
     Dates: start: 20100107
  9. FLIVAS [Concomitant]
     Indication: BENIGN PROSTATIC HYPERPLASIA
     Dosage: 75 MG, DAILY (1/D)
     Route: 048
     Dates: start: 20030101
  10. FAMOTIDINE [Concomitant]
     Indication: GASTRITIS
     Dosage: 20 MG, DAILY (1/D)
     Route: 048
     Dates: start: 19980101
  11. FERROMIA [Concomitant]
     Indication: ANAEMIA
     Dosage: 50 MG, DAILY (1/D)
     Route: 048
     Dates: start: 19980101
  12. HICEE [Concomitant]
     Indication: ANAEMIA
     Dosage: 1 G, DAILY (1/D)
     Route: 048
     Dates: start: 19980101
  13. TOWAMIN [Concomitant]
     Indication: HYPERTENSION
     Dosage: 50 MG, DAILY (1/D)
     Route: 048
     Dates: start: 19920101, end: 20100401
  14. CONIEL [Concomitant]
     Indication: HYPERTENSION
     Dosage: 4 MG, DAILY (1/D)
     Route: 048
     Dates: start: 19920101
  15. GRANISETRON [Concomitant]
     Indication: NAUSEA
     Dosage: 3 MG, DAILY (1/D)
     Route: 042
     Dates: start: 20100114, end: 20100114
  16. GRANISETRON [Concomitant]
     Dosage: 3 MG, DAILY (1/D)
     Route: 042
     Dates: start: 20100210, end: 20100210
  17. GRANISETRON [Concomitant]
     Dosage: 3 MG, DAILY (1/D)
     Route: 042
     Dates: start: 20100324, end: 20100324
  18. DEXART [Concomitant]
     Indication: NAUSEA
     Dosage: 6.6 MG, DAILY (1/D)
     Route: 048
     Dates: start: 20100114, end: 20100114
  19. DEXART [Concomitant]
     Dosage: 6.6 MG, DAILY (1/D)
     Route: 042
     Dates: start: 20100210, end: 20100210
  20. DEXART [Concomitant]
     Dosage: 6.6 MG, DAILY (1/D)
     Route: 042
     Dates: start: 20100324, end: 20100324
  21. PRIMPERAN                               /SCH/ [Concomitant]
     Indication: NAUSEA
     Dosage: 5 MG, AS NEEDED
     Route: 048
     Dates: start: 20100115
  22. BIOFERMIN [Concomitant]
     Indication: DIARRHOEA
     Dosage: 3 G, DAILY (1/D)
     Route: 048
     Dates: start: 20100120, end: 20100227
  23. MAGLAX [Concomitant]
     Indication: CONSTIPATION
     Dosage: 500 MG, AS NEEDED
     Route: 048
     Dates: start: 20100208
  24. PURSENNID [Concomitant]
     Indication: CONSTIPATION
     Dosage: 12 MG, AS NEEDED
     Route: 048
     Dates: start: 20100121
  25. LECICARBON [Concomitant]
     Indication: CONSTIPATION
     Dosage: 1 D/F, AS NEEDED
     Route: 054
     Dates: start: 20100218, end: 20100218
  26. LOXONIN [Concomitant]
     Indication: PYREXIA
     Dosage: 60 MG, AS NEEDED
     Route: 048
     Dates: start: 20100219, end: 20100220

REACTIONS (1)
  - DIZZINESS [None]
